FAERS Safety Report 20836939 (Version 3)
Quarter: 2022Q2

REPORT INFORMATION
  Report Type: Report from Study
  Country: DE (occurrence: None)
  Receive Date: 20220517
  Receipt Date: 20220607
  Transmission Date: 20220720
  Serious: Yes (Death, Hospitalization)
  Sender: FDA-Public Use
  Company Number: DE-ROCHE-3097228

PATIENT
  Age: 67 Year
  Sex: Male
  Weight: 64 kg

DRUGS (12)
  1. ATEZOLIZUMAB [Suspect]
     Active Substance: ATEZOLIZUMAB
     Indication: Adenocarcinoma pancreas
     Dosage: LAST DOSE OF ATEZOLIZUMAB BEFORE THE EVENT WAS ADMINISTERED ON STUDY DAY 17 (22-APR-2022).
     Route: 042
     Dates: start: 20220422, end: 20220422
  2. PELAREOREP [Suspect]
     Active Substance: PELAREOREP
     Indication: Adenocarcinoma pancreas
     Dosage: LAST DOSE OF PELAREOREP BEFORE THE EVENT WAS ADMINISTERED ON STUDY DAY 16?(21-APR-2022). DOSE 4.5 X
     Route: 042
     Dates: start: 20220406, end: 20220421
  3. GEMCITABINE [Suspect]
     Active Substance: GEMCITABINE
     Indication: Adenocarcinoma pancreas
     Dosage: LAST DOSE OF GEMCITABINE BEFORE THE EVENT WAS ADMINISTERED ON STUDY DAY 15 (20-APR-2022).
     Route: 042
     Dates: start: 20220406, end: 20220420
  4. PACLITAXEL [Suspect]
     Active Substance: PACLITAXEL
     Indication: Adenocarcinoma pancreas
     Dosage: LAST DOSE OF NAB-PACLITAXEL BEFORE THE EVENT WAS ADMINISTERED ON STUDY DAY 15 (20-APR-2022).
     Route: 042
     Dates: start: 20220406, end: 20220420
  5. ASPIRIN [Concomitant]
     Active Substance: ASPIRIN
     Dosage: 100 MG P.O. QD
     Route: 048
     Dates: start: 2016
  6. PANTOPRAZOLE [Concomitant]
     Active Substance: PANTOPRAZOLE
     Dosage: 20 MG P.O. QD
     Route: 048
     Dates: start: 2016
  7. METFORMIN [Concomitant]
     Active Substance: METFORMIN HYDROCHLORIDE
     Dosage: 1 G P.O. BID
     Route: 048
     Dates: start: 2020
  8. BISOPROLOL [Concomitant]
     Active Substance: BISOPROLOL
     Dosage: 10 MG P.O. QD
     Route: 048
     Dates: start: 2016
  9. ACETAMINOPHEN [Concomitant]
     Active Substance: ACETAMINOPHEN
     Dosage: 500 MG P.O. PRN
     Route: 048
     Dates: start: 2022
  10. ONDANSETRON [Concomitant]
     Active Substance: ONDANSETRON
     Dosage: 8 MG P.O. PRN
     Route: 048
     Dates: start: 20220406
  11. LOPERAMIDE [Concomitant]
     Active Substance: LOPERAMIDE
     Dosage: 2 MG P.O. PRN
     Route: 048
     Dates: start: 20220407
  12. METOCLOPRAMIDE HYDROCHLORIDE [Concomitant]
     Active Substance: METOCLOPRAMIDE HYDROCHLORIDE
     Dosage: 8 MG P.O. PRN
     Route: 048
     Dates: start: 20220406

REACTIONS (1)
  - Sepsis [Fatal]

NARRATIVE: CASE EVENT DATE: 20220428
